FAERS Safety Report 6465633-X (Version None)
Quarter: 2009Q4

REPORT INFORMATION
  Report Type: 
  Country: None (occurrence: None)
  Receive Date: 20091118
  Receipt Date: 20090724
  Transmission Date: 20100525
  Serious: Yes (Hospitalization)
  Sender: FDA-Public Use
  Company Number: 2009BI017958

PATIENT
  Age: 58 Year
  Sex: Female

DRUGS (5)
  1. TYSABRI [Suspect]
     Indication: MULTIPLE SCLEROSIS
     Dosage: 300 MG;QM;IV
     Route: 042
     Dates: start: 20061227
  2. PROCARDIA [Concomitant]
  3. BACLOFEN [Concomitant]
  4. AVONEX [Concomitant]
  5. NEURONTIN [Concomitant]

REACTIONS (8)
  - ANAEMIA [None]
  - HEPATIC ENZYME INCREASED [None]
  - HYPONATRAEMIA [None]
  - NEUROGENIC BLADDER [None]
  - PNEUMONIA [None]
  - RAYNAUD'S PHENOMENON [None]
  - URGE INCONTINENCE [None]
  - URINARY TRACT INFECTION [None]
